FAERS Safety Report 10035922 (Version 1)
Quarter: 2014Q1

REPORT INFORMATION
  Report Type: Spontaneous
  Country: GB (occurrence: GB)
  Receive Date: 20140325
  Receipt Date: 20140325
  Transmission Date: 20141002
  Serious: Yes (Other)
  Sender: FDA-Public Use
  Company Number: GB-WATSON-2014-05387

PATIENT
  Age: 26 Year
  Sex: Female
  Weight: 56 kg

DRUGS (2)
  1. MIRTAZAPINE (UNKNOWN) [Suspect]
     Indication: MAJOR DEPRESSION
     Dosage: 10 MG, UNKNOWN
     Route: 048
  2. CITALOPRAM [Concomitant]
     Indication: ILL-DEFINED DISORDER
     Dosage: UNK
     Route: 065

REACTIONS (3)
  - Dizziness [Recovered/Resolved with Sequelae]
  - Abdominal distension [Not Recovered/Not Resolved]
  - Weight increased [Not Recovered/Not Resolved]
